FAERS Safety Report 8308276-5 (Version None)
Quarter: 2012Q2

REPORT INFORMATION
  Report Type: 
  Country: None (occurrence: None)
  Receive Date: 20120424
  Receipt Date: 20120410
  Transmission Date: 20120825
  Serious: Yes (Hospitalization)
  Sender: FDA-Public Use
  Company Number: AU-ROCHE-1058185

PATIENT
  Sex: Female

DRUGS (2)
  1. ISOTRETINOIN [Suspect]
     Indication: PRODUCT USED FOR UNKNOWN INDICATION
  2. ISOTRETINOIN [Suspect]

REACTIONS (6)
  - PAIN IN EXTREMITY [None]
  - RETCHING [None]
  - SWOLLEN TONGUE [None]
  - LIP BLISTER [None]
  - LIP SWELLING [None]
  - NAUSEA [None]
